FAERS Safety Report 23794565 (Version 1)
Quarter: 2024Q2

REPORT INFORMATION
  Report Type: Spontaneous
  Country: US (occurrence: US)
  Receive Date: 20240429
  Receipt Date: 20240429
  Transmission Date: 20240715
  Serious: Yes (Death, Other)
  Sender: FDA-Public Use
  Company Number: US-BAXTER-2024BAX017104

PATIENT

DRUGS (2)
  1. CARDENE [Suspect]
     Active Substance: NICARDIPINE HYDROCHLORIDE
     Dosage: 140 ML (28 MG) OF THE NICARDIPINE INFUSED OVER 30 MINUTES. (40 MG/200 ML INFUSION)
     Route: 042
  2. FLEXBUMIN [Suspect]
     Active Substance: ALBUMIN HUMAN
     Dosage: 5% SOLUTION 250ML
     Route: 042

REACTIONS (4)
  - Cardiac arrest [Fatal]
  - Product packaging confusion [Fatal]
  - Wrong product administered [Fatal]
  - Blood pressure decreased [Unknown]
